FAERS Safety Report 15563179 (Version 1)
Quarter: 2018Q4

REPORT INFORMATION
  Report Type: Spontaneous
  Country: IT (occurrence: IT)
  Receive Date: 20181029
  Receipt Date: 20181029
  Transmission Date: 20190205
  Serious: Yes (Other)
  Sender: FDA-Public Use
  Company Number: IT-MYLANLABS-2018M1080211

PATIENT
  Age: 82 Year
  Sex: Female

DRUGS (2)
  1. MINOXIDIL. [Concomitant]
     Active Substance: MINOXIDIL
     Indication: CUTANEOUS LUPUS ERYTHEMATOSUS
     Dosage: 2 %
  2. HYDROXYCHLOROQUINE [Suspect]
     Active Substance: HYDROXYCHLOROQUINE
     Indication: CUTANEOUS LUPUS ERYTHEMATOSUS
     Dosage: UNK,
     Route: 065

REACTIONS (2)
  - Therapy partial responder [Unknown]
  - Retinal toxicity [Unknown]
